FAERS Safety Report 5964909-X (Version None)
Quarter: 2008Q4

REPORT INFORMATION
  Report Type: 
  Country: None (occurrence: None)
  Receive Date: 20081125
  Receipt Date: 20081111
  Transmission Date: 20090506
  Serious: Yes (Disabling, Other)
  Sender: FDA-Public Use
  Company Number: PHEH2007US08936

PATIENT
  Sex: Male
  Weight: 81.632 kg

DRUGS (6)
  1. ZOMETA [Suspect]
     Indication: OSTEOPOROSIS
     Dosage: 4 MG OVER 15 MINUTES
     Route: 042
     Dates: start: 20070612
  2. FLUTAMIDE [Concomitant]
     Indication: PROSTATE CANCER
     Dosage: UNK, UNK
     Route: 048
     Dates: start: 20070501, end: 20070601
  3. ZOLADEX [Concomitant]
     Indication: PROSTATE CANCER
     Dosage: 10.8 MG EVERY THREE MONTHS
     Route: 058
     Dates: start: 20070301, end: 20070601
  4. VITAMIN D [Concomitant]
  5. CALCIUM [Concomitant]
  6. PRILOSEC [Concomitant]

REACTIONS (40)
  - ACUTE SINUSITIS [None]
  - ALANINE AMINOTRANSFERASE INCREASED [None]
  - ARTHRALGIA [None]
  - ARTHRITIS [None]
  - ASPARTATE AMINOTRANSFERASE INCREASED [None]
  - ASTHENIA [None]
  - ATRIAL FIBRILLATION [None]
  - BLOOD GLUCOSE INCREASED [None]
  - BONE LESION [None]
  - BONE PAIN [None]
  - CARDIAC MURMUR FUNCTIONAL [None]
  - CHILLS [None]
  - DEPRESSION [None]
  - DIZZINESS [None]
  - ERECTILE DYSFUNCTION [None]
  - FALL [None]
  - FATIGUE [None]
  - FEELING ABNORMAL [None]
  - FEELING OF BODY TEMPERATURE CHANGE [None]
  - FOOD INTOLERANCE [None]
  - GAIT DISTURBANCE [None]
  - HAEMATOCRIT DECREASED [None]
  - HAEMOGLOBIN DECREASED [None]
  - HEADACHE [None]
  - LIVER FUNCTION TEST ABNORMAL [None]
  - MALAISE [None]
  - METASTASES TO BONE [None]
  - MYALGIA [None]
  - NAUSEA [None]
  - NONSPECIFIC REACTION [None]
  - PENILE SIZE REDUCED [None]
  - PROSTATIC SPECIFIC ANTIGEN INCREASED [None]
  - PYREXIA [None]
  - RADIOTHERAPY [None]
  - RED BLOOD CELL COUNT DECREASED [None]
  - RED CELL DISTRIBUTION WIDTH INCREASED [None]
  - SUPRAVENTRICULAR TACHYCARDIA [None]
  - TENDERNESS [None]
  - TESTICULAR ATROPHY [None]
  - VIRAL INFECTION [None]
